FAERS Safety Report 5655157-1 (Version None)
Quarter: 2008Q1

REPORT INFORMATION
  Report Type: 
  Country: None (occurrence: None)
  Receive Date: 20080307
  Receipt Date: 20080225
  Transmission Date: 20080703
  Serious: Yes (Hospitalization)
  Sender: FDA-Public Use
  Company Number: US-AMGEN-QUU266962

PATIENT
  Sex: Female

DRUGS (1)
  1. ENBREL [Suspect]
     Indication: PSORIASIS
     Route: 058
     Dates: start: 20060901

REACTIONS (6)
  - BLOOD GLUCOSE DECREASED [None]
  - COLONIC POLYP [None]
  - DIARRHOEA [None]
  - FALL [None]
  - MUSCULAR WEAKNESS [None]
  - TREMOR [None]
